FAERS Safety Report 7819057-0 (Version None)
Quarter: 2011Q4

REPORT INFORMATION
  Report Type: 
  Country: None (occurrence: None)
  Receive Date: 20111012
  Receipt Date: 20110930
  Transmission Date: 20120403
  Serious: Yes (Hospitalization)
  Sender: FDA-Public Use
  Company Number: 1000024257

PATIENT
  Age: 86 Year
  Sex: Female

DRUGS (4)
  1. INDAPAMIDE [Concomitant]
  2. ATIVAN [Concomitant]
  3. ESCITALOPRAM [Suspect]
     Dosage: 5 MG (5 MG, 1 IN 1 D), ORAL, 2.5 MG (2.5 MG, 1 IN 1 D), ORAL
     Route: 048
     Dates: start: 20110910, end: 20110911
  4. ESCITALOPRAM [Suspect]
     Dosage: 5 MG (5 MG, 1 IN 1 D), ORAL, 2.5 MG (2.5 MG, 1 IN 1 D), ORAL
     Route: 048
     Dates: start: 20110912

REACTIONS (4)
  - BLOOD SODIUM DECREASED [None]
  - BLOOD POTASSIUM DECREASED [None]
  - NAUSEA [None]
  - DIARRHOEA [None]
